FAERS Safety Report 4299632-3 (Version None)
Quarter: 2004Q1

REPORT INFORMATION
  Report Type: 
  Country: None (occurrence: None)
  Receive Date: 20040217
  Receipt Date: 20040213
  Transmission Date: 20041129
  Serious: Yes (Hospitalization)
  Sender: FDA-Public Use
  Company Number: 200410483GDS

PATIENT
  Age: 76 Year
  Sex: Male

DRUGS (1)
  1. ASPIRIN CARDIO (ACETYLSALICYLIC ACID) [Suspect]
     Indication: PROPHYLAXIS
     Dosage: 100 MG, QD, ORAL
     Route: 048
     Dates: end: 20040109

REACTIONS (1)
  - HAEMORRHAGE INTRACRANIAL [None]
